FAERS Safety Report 19420518 (Version 1)
Quarter: 2021Q2

REPORT INFORMATION
  Report Type: Spontaneous
  Country: CA (occurrence: CA)
  Receive Date: 20210616
  Receipt Date: 20210616
  Transmission Date: 20210717
  Serious: Yes (Life-Threatening, Hospitalization, Other)
  Sender: FDA-Public Use
  Company Number: CA-TEVA-2021-CA-1921690

PATIENT
  Age: 75 Year
  Sex: Female

DRUGS (13)
  1. ROSUVASTATIN. [Suspect]
     Active Substance: ROSUVASTATIN
     Indication: PRODUCT USED FOR UNKNOWN INDICATION
     Route: 048
  2. URSODIOL. [Concomitant]
     Active Substance: URSODIOL
  3. CEFTRIAXONE. [Concomitant]
     Active Substance: CEFTRIAXONE
     Route: 030
  4. NADOLOL. [Concomitant]
     Active Substance: NADOLOL
  5. NOVOLIN NOS [Concomitant]
     Active Substance: INSULIN HUMAN
     Route: 030
  6. CALCIUM [Concomitant]
     Active Substance: CALCIUM
  7. JANUMET XR [Concomitant]
     Active Substance: METFORMIN HYDROCHLORIDE\SITAGLIPTIN PHOSPHATE
  8. FUROSEMIDE. [Concomitant]
     Active Substance: FUROSEMIDE
  9. GABAPENTIN. [Concomitant]
     Active Substance: GABAPENTIN
  10. AMITRIPTYLINE [Concomitant]
     Active Substance: AMITRIPTYLINE
  11. ERGOCALCIFEROL. [Concomitant]
     Active Substance: ERGOCALCIFEROL
  12. FORXIGA [Suspect]
     Active Substance: DAPAGLIFLOZIN
     Indication: TYPE 2 DIABETES MELLITUS
     Dosage: 2.5 MILLIGRAM DAILY;
     Route: 048
  13. FERROUS FUMARATE [Concomitant]
     Active Substance: FERROUS FUMARATE

REACTIONS (11)
  - Cardiac arrest [Unknown]
  - Blood creatinine increased [Unknown]
  - Flank pain [Unknown]
  - Candida test positive [Unknown]
  - Haematuria [Unknown]
  - Pyuria [Unknown]
  - Fungal infection [Unknown]
  - Systemic candida [Unknown]
  - Endocarditis [Unknown]
  - Hydronephrosis [Unknown]
  - Urinary tract infection fungal [Unknown]
